FAERS Safety Report 14594231 (Version 1)
Quarter: 2018Q1

REPORT INFORMATION
  Report Type: Spontaneous
  Country: US (occurrence: US)
  Receive Date: 20180302
  Receipt Date: 20180302
  Transmission Date: 20180509
  Serious: No
  Sender: FDA-Public Use
  Company Number: US-AMGEN-USASP2017161733

PATIENT
  Age: 56 Year
  Sex: Male

DRUGS (3)
  1. SENSIPAR [Suspect]
     Active Substance: CINACALCET HYDROCHLORIDE
     Indication: HYPERPARATHYROIDISM SECONDARY
     Dosage: 30 MG, UNK
     Route: 065
     Dates: start: 20160322
  2. ZEMPLAR [Concomitant]
     Active Substance: PARICALCITOL
     Dosage: UNK UNK, 3 TIMES/WK, 5 TO 10 MCG
  3. SENSIPAR [Suspect]
     Active Substance: CINACALCET HYDROCHLORIDE
     Dosage: 60 MG, UNK
     Route: 065
     Dates: start: 20170517, end: 20170617

REACTIONS (1)
  - Treatment noncompliance [Unknown]
